FAERS Safety Report 11307950 (Version 1)
Quarter: 2015Q3

REPORT INFORMATION
  Report Type: Spontaneous
  Country: FR (occurrence: FR)
  Receive Date: 20150724
  Receipt Date: 20150724
  Transmission Date: 20151125
  Serious: Yes (Hospitalization)
  Sender: FDA-Public Use
  Company Number: FR-ROCHE-1612517

PATIENT
  Age: 91 Year
  Sex: Female

DRUGS (12)
  1. APRANAX [Suspect]
     Active Substance: NAPROXEN
     Indication: OSTEOARTHRITIS
     Route: 048
     Dates: start: 20150609, end: 20150623
  2. DETENSIEL [Concomitant]
     Active Substance: BISOPROLOL FUMARATE
  3. AMOXICILLINE [Suspect]
     Active Substance: AMOXICILLIN
     Indication: BRONCHITIS
     Route: 048
     Dates: start: 20150618, end: 20150625
  4. CACIT D3 [Concomitant]
     Active Substance: CALCIUM\CHOLECALCIFEROL
  5. INEXIUM [Concomitant]
     Active Substance: ESOMEPRAZOLE
  6. ATACAND [Concomitant]
     Active Substance: CANDESARTAN CILEXETIL
  7. LERCAN [Concomitant]
     Active Substance: LERCANIDIPINE
  8. AUGMENTIN [Suspect]
     Active Substance: AMOXICILLIN\CLAVULANATE POTASSIUM
     Indication: BRONCHITIS
     Route: 048
     Dates: start: 20150625, end: 20150630
  9. CHONDROSULF [Concomitant]
     Active Substance: CHONDROITIN SULFATE (CHICKEN)
  10. PARACETAMOL [Concomitant]
     Active Substance: ACETAMINOPHEN
  11. LIPANTHYL [Concomitant]
     Active Substance: FENOFIBRATE
  12. ADENURIC [Concomitant]
     Active Substance: FEBUXOSTAT

REACTIONS (4)
  - Lymphadenopathy [Recovering/Resolving]
  - Eosinophilia [Recovering/Resolving]
  - Enanthema [Recovering/Resolving]
  - Rash maculo-papular [Recovering/Resolving]

NARRATIVE: CASE EVENT DATE: 20150628
